FAERS Safety Report 15310165 (Version 2)
Quarter: 2018Q3

REPORT INFORMATION
  Report Type: Spontaneous
  Country: US (occurrence: US)
  Receive Date: 20180823
  Receipt Date: 20180828
  Transmission Date: 20181010
  Serious: No
  Sender: FDA-Public Use
  Company Number: US-PFIZER INC-2018335886

PATIENT
  Sex: Female

DRUGS (1)
  1. XALKORI [Suspect]
     Active Substance: CRIZOTINIB
     Dosage: UNK

REACTIONS (4)
  - Oedema [Unknown]
  - Peripheral swelling [Not Recovered/Not Resolved]
  - Weight increased [Unknown]
  - Erythema [Not Recovered/Not Resolved]
